FAERS Safety Report 7440094-2 (Version None)
Quarter: 2011Q2

REPORT INFORMATION
  Report Type: 
  Country: None (occurrence: None)
  Receive Date: 20110427
  Receipt Date: 20110418
  Transmission Date: 20111010
  Serious: Yes (Disabling, Other)
  Sender: FDA-Public Use
  Company Number: US-ROCHE-727270

PATIENT
  Sex: Female
  Weight: 52.2 kg

DRUGS (1)
  1. ACCUTANE [Suspect]
     Route: 065
     Dates: start: 19980201, end: 19980501

REACTIONS (10)
  - ANXIETY [None]
  - PANIC ATTACK [None]
  - INFLAMMATORY BOWEL DISEASE [None]
  - EPISTAXIS [None]
  - ACNE [None]
  - DEPRESSION [None]
  - LIP DRY [None]
  - DRY SKIN [None]
  - CROHN'S DISEASE [None]
  - GASTROINTESTINAL INJURY [None]
